FAERS Safety Report 6419381-2 (Version None)
Quarter: 2009Q4

REPORT INFORMATION
  Report Type: 
  Country: None (occurrence: None)
  Receive Date: 20091029
  Receipt Date: 20091020
  Transmission Date: 20100525
  Serious: Yes (Other)
  Sender: FDA-Public Use
  Company Number: US-JNJFOC-20091007315

PATIENT
  Sex: Male
  Weight: 83.01 kg

DRUGS (2)
  1. REMICADE [Suspect]
     Route: 042
     Dates: start: 20090407, end: 20090618
  2. REMICADE [Suspect]
     Indication: RHEUMATOID ARTHRITIS
     Route: 042
     Dates: start: 20090407, end: 20090618

REACTIONS (1)
  - CORONARY ARTERY BYPASS [None]
